FAERS Safety Report 4775500-5 (Version None)
Quarter: 2005Q3

REPORT INFORMATION
  Report Type: 
  Country: None (occurrence: None)
  Receive Date: 20050921
  Receipt Date: 20050921
  Transmission Date: 20060218
  Serious: Yes (Hospitalization)
  Sender: FDA-Public Use
  Company Number: None

PATIENT
  Age: 20 Year
  Sex: Female
  Weight: 31.9332 kg

DRUGS (1)
  1. STEM CELL TISSUE [Suspect]

REACTIONS (2)
  - COMPLICATIONS OF TRANSPLANT SURGERY [None]
  - GRAFT VERSUS HOST DISEASE [None]
